FAERS Safety Report 23918374 (Version 3)
Quarter: 2025Q2

REPORT INFORMATION
  Report Type: Report from Study
  Country: BG (occurrence: BG)
  Receive Date: 20240530
  Receipt Date: 20250425
  Transmission Date: 20250717
  Serious: Yes (Hospitalization, Other)
  Sender: TAKEDA
  Company Number: BG-TAKEDA-2024TUS051693

PATIENT
  Age: 78 Year
  Sex: Female

DRUGS (9)
  1. LANADELUMAB [Suspect]
     Active Substance: LANADELUMAB
     Indication: Hereditary angioedema
     Dosage: 300 MILLIGRAM, Q2WEEKS
     Dates: start: 20220528
  2. LANADELUMAB [Suspect]
     Active Substance: LANADELUMAB
     Dosage: UNK UNK, Q2WEEKS
  3. FIRAZYR [Suspect]
     Active Substance: ICATIBANT ACETATE
     Indication: Product used for unknown indication
  4. FIRAZYR [Suspect]
     Active Substance: ICATIBANT ACETATE
  5. DOXAZOSIN [Concomitant]
     Active Substance: DOXAZOSIN MESYLATE
     Dosage: 2 DOSAGE FORM, QD
  6. Trifas cor [Concomitant]
     Dosage: 1 DOSAGE FORM, QD
  7. BISOPROLOL FUMARATE [Concomitant]
     Active Substance: BISOPROLOL FUMARATE
     Dosage: 2 DOSAGE FORM, QD
  8. Neoformin [Concomitant]
     Dosage: 2 DOSAGE FORM, QD
  9. SPIRONOLACTONE [Concomitant]
     Active Substance: SPIRONOLACTONE
     Dosage: 1 DOSAGE FORM, QD

REACTIONS (16)
  - Cholecystitis [Not Recovered/Not Resolved]
  - Cholelithiasis [Not Recovered/Not Resolved]
  - Gait disturbance [Unknown]
  - Pyelonephritis [Unknown]
  - Pancreatitis [Not Recovered/Not Resolved]
  - Cataract [Unknown]
  - Dizziness [Unknown]
  - Faecal occult blood positive [Unknown]
  - Anaemia [Unknown]
  - Blood lactate dehydrogenase decreased [Unknown]
  - Drug ineffective [Unknown]
  - Weight decreased [Unknown]
  - Fatigue [Unknown]
  - Night sweats [Unknown]
  - Constipation [Unknown]
  - Hepatic steatosis [Unknown]

NARRATIVE: CASE EVENT DATE: 20240514
